FAERS Safety Report 8001141-2 (Version None)
Quarter: 2011Q4

REPORT INFORMATION
  Report Type: 
  Country: None (occurrence: None)
  Receive Date: 20111219
  Receipt Date: 20111205
  Transmission Date: 20120403
  Serious: Yes (Hospitalization)
  Sender: FDA-Public Use
  Company Number: 2011MA017226

PATIENT
  Sex: Male

DRUGS (1)
  1. DIGOXIN [Suspect]
     Indication: PRODUCT USED FOR UNKNOWN INDICATION
     Dosage: 0.125 MG;QD;PO
     Route: 048
     Dates: start: 20070716, end: 20080309

REACTIONS (2)
  - ELECTROCARDIOGRAM [None]
  - UNEVALUABLE EVENT [None]
